FAERS Safety Report 21842988 (Version 2)
Quarter: 2023Q1

REPORT INFORMATION
  Report Type: Report from Study
  Country: US (occurrence: None)
  Receive Date: 20230110
  Receipt Date: 20230119
  Transmission Date: 20230417
  Serious: Yes (Other)
  Sender: FDA-Public Use
  Company Number: US-ROCHE-3112481

PATIENT
  Age: 74 Year
  Sex: Female
  Weight: 62.7 kg

DRUGS (29)
  1. MOSUNETUZUMAB [Suspect]
     Active Substance: MOSUNETUZUMAB
     Indication: Non-Hodgkin^s lymphoma
     Dosage: START DATE OF MOST RECENT DOSE (5 MG) OF STUDY DRUG PRIOR TO SAE: 01/JUN/2022
     Route: 058
     Dates: start: 20220601
  2. POLATUZUMAB VEDOTIN [Suspect]
     Active Substance: POLATUZUMAB VEDOTIN
     Indication: Non-Hodgkin^s lymphoma
     Dosage: START DATE OF MOST RECENT DOSE (140 MG) OF STUDY DRUG PRIOR TO SAE: 01/JUN/2022
     Route: 042
     Dates: start: 20220601
  3. UDENYCA [Concomitant]
     Active Substance: PEGFILGRASTIM-CBQV
     Dosage: GIVEN FOR PROPHYLAXIS:YES
     Route: 030
     Dates: start: 20220525, end: 20220525
  4. ELAVIL [Concomitant]
     Active Substance: AMITRIPTYLINE HYDROCHLORIDE
     Dosage: GIVEN FOR PROPHYLAXIS:NO
     Route: 047
     Dates: start: 1991
  5. LEVOTHYROXINE [Concomitant]
     Active Substance: LEVOTHYROXINE
     Dosage: GIVEN FOR PROPHYLAXIS:NO
     Route: 047
     Dates: start: 1997
  6. LEVOTHYROXINE [Concomitant]
     Active Substance: LEVOTHYROXINE
     Route: 048
     Dates: start: 1997
  7. OMEPRAZOLE [Concomitant]
     Active Substance: OMEPRAZOLE
     Dosage: GIVEN FOR PROPHYLAXIS:NO
     Route: 047
     Dates: start: 2001
  8. AMLODIPINE [Concomitant]
     Active Substance: AMLODIPINE BESYLATE
     Dosage: GIVEN FOR PROPHYLAXIS:NO
     Route: 048
     Dates: start: 2016
  9. PRAVASTATIN [Concomitant]
     Active Substance: PRAVASTATIN
     Dosage: GIVEN FOR PROPHYLAXIS:NO
     Route: 048
     Dates: start: 202201
  10. ACYCLOVIR [Concomitant]
     Active Substance: ACYCLOVIR
     Dosage: GIVEN FOR PROPHYLAXIS:YES
     Route: 048
     Dates: start: 2018
  11. MAGNESIUM OXIDE [Concomitant]
     Active Substance: MAGNESIUM OXIDE
     Dosage: GIVEN FOR PROPHYLAXIS:NO
     Route: 048
     Dates: start: 2018
  12. KLOR-CON [Concomitant]
     Active Substance: POTASSIUM CHLORIDE
     Dosage: DOSE:20 OTHER, GIVEN FOR PROPHYLAXIS:NO
     Route: 048
     Dates: start: 2018
  13. GABAPENTIN [Concomitant]
     Active Substance: GABAPENTIN
     Dosage: GIVEN FOR PROPHYLAXIS:NO
     Route: 048
     Dates: start: 20220413
  14. LACTULOSE [Concomitant]
     Active Substance: LACTULOSE
     Dosage: GIVEN FOR PROPHYLAXIS:NO
     Route: 048
     Dates: start: 20220413
  15. IMITREX [Concomitant]
     Active Substance: SUMATRIPTAN SUCCINATE
     Dosage: GIVEN FOR PROPHYLAXIS:NO
     Route: 048
     Dates: start: 2007
  16. BIOTIN [Concomitant]
     Active Substance: BIOTIN
     Dosage: GIVEN FOR PROPHYLAXIS:YES
     Route: 048
     Dates: start: 2010
  17. DEXAMETHASONE [Concomitant]
     Active Substance: DEXAMETHASONE
     Dosage: GIVEN FOR PROPHYLAXIS:YES
     Route: 048
     Dates: start: 20220601, end: 20220601
  18. DIPHENHYDRAMINE [Concomitant]
     Active Substance: DIPHENHYDRAMINE
     Dosage: GIVEN FOR PROPHYLAXIS:YES
     Route: 048
     Dates: start: 20220601, end: 20220601
  19. ACETAMINOPHEN [Concomitant]
     Active Substance: ACETAMINOPHEN
     Dosage: GIVEN FOR PROPHYLAXIS:YES
     Route: 048
     Dates: start: 20220601, end: 20220601
  20. ACETAMINOPHEN [Concomitant]
     Active Substance: ACETAMINOPHEN
     Dosage: GIVEN FOR PROPHYLAXIS:YES
     Route: 048
     Dates: start: 20220608, end: 20220608
  21. ACETAMINOPHEN [Concomitant]
     Active Substance: ACETAMINOPHEN
     Dosage: GIVEN FOR PROPHYLAXIS:YES
     Route: 048
     Dates: start: 20220615, end: 20220615
  22. FAMOTIDINE [Concomitant]
     Active Substance: FAMOTIDINE
     Route: 048
     Dates: start: 20220615, end: 20220615
  23. FAMOTIDINE [Concomitant]
     Active Substance: FAMOTIDINE
     Route: 048
     Dates: start: 20220608, end: 20220608
  24. FAMOTIDINE [Concomitant]
     Active Substance: FAMOTIDINE
     Route: 042
     Dates: start: 20220713, end: 20220713
  25. FILGRASTIM [Concomitant]
     Active Substance: FILGRASTIM
     Route: 058
     Dates: start: 20220616, end: 20220616
  26. CETIRIZINE HYDROCHLORIDE [Concomitant]
     Active Substance: CETIRIZINE HYDROCHLORIDE
     Route: 048
     Dates: start: 20220616, end: 20220616
  27. CILGAVIMAB\TIXAGEVIMAB [Concomitant]
     Active Substance: CILGAVIMAB\TIXAGEVIMAB
     Route: 030
     Dates: start: 20220713, end: 20220713
  28. XTAMPZA ER [Concomitant]
     Active Substance: OXYCODONE
     Route: 048
     Dates: start: 20220616, end: 20220708
  29. XTAMPZA ER [Concomitant]
     Active Substance: OXYCODONE
     Route: 048
     Dates: start: 20220420, end: 20220616

REACTIONS (1)
  - Cytokine release syndrome [Recovered/Resolved]

NARRATIVE: CASE EVENT DATE: 20220602
